FAERS Safety Report 13930571 (Version 1)
Quarter: 2017Q3

REPORT INFORMATION
  Report Type: Report from Study
  Country: DE (occurrence: DE)
  Receive Date: 20170901
  Receipt Date: 20170901
  Transmission Date: 20171127
  Serious: Yes (Death)
  Sender: FDA-Public Use
  Company Number: DE-SA-2017SA161624

PATIENT
  Age: 63 Year
  Sex: Female

DRUGS (16)
  1. LEVOFLOXACIN. [Suspect]
     Active Substance: LEVOFLOXACIN
     Indication: ANTIBIOTIC PROPHYLAXIS
     Route: 065
  2. MYCOPHENOLATE MOFETIL. [Suspect]
     Active Substance: MYCOPHENOLATE MOFETIL
     Indication: ACUTE MYELOID LEUKAEMIA
     Route: 065
  3. CEFTAZIDIME. [Suspect]
     Active Substance: CEFTAZIDIME
     Indication: ANTIBIOTIC PROPHYLAXIS
     Route: 065
  4. BUSULFAN. [Suspect]
     Active Substance: BUSULFAN
     Indication: ACUTE MYELOID LEUKAEMIA
     Route: 065
  5. CYCLOSPORIN [Suspect]
     Active Substance: CYCLOSPORINE
     Indication: ACUTE MYELOID LEUKAEMIA
     Route: 065
  6. CYTARABINE. [Suspect]
     Active Substance: CYTARABINE
     Indication: ACUTE MYELOID LEUKAEMIA
     Route: 065
  7. AMPHOTERICIN B. [Suspect]
     Active Substance: AMPHOTERICIN B
     Indication: ANTIBIOTIC PROPHYLAXIS
     Route: 065
  8. FLUDARABINE PHOSPHATE. [Suspect]
     Active Substance: FLUDARABINE PHOSPHATE
     Indication: ACUTE MYELOID LEUKAEMIA
     Route: 065
  9. VANCOMYCIN [Suspect]
     Active Substance: VANCOMYCIN
     Indication: ANTIBIOTIC PROPHYLAXIS
     Route: 065
  10. THYMOGLOBULINE [Suspect]
     Active Substance: LAPINE T-LYMPHOCYTE IMMUNE GLOBULIN
     Indication: ACUTE MYELOID LEUKAEMIA
     Route: 065
  11. MEROPENEM. [Suspect]
     Active Substance: MEROPENEM
     Indication: ANTIBIOTIC PROPHYLAXIS
     Route: 065
  12. FLUCONAZOLE. [Suspect]
     Active Substance: FLUCONAZOLE
     Indication: ANTIFUNGAL PROPHYLAXIS
     Route: 065
  13. AMSACRINE [Suspect]
     Active Substance: AMSACRINE
     Indication: ACUTE MYELOID LEUKAEMIA
     Route: 065
  14. TIGECYCLINE. [Suspect]
     Active Substance: TIGECYCLINE
     Indication: ANTIBIOTIC PROPHYLAXIS
     Route: 065
  15. CASPOFUNGIN [Suspect]
     Active Substance: CASPOFUNGIN
     Indication: ANTIBIOTIC PROPHYLAXIS
     Route: 065
  16. TAZOBACTAM/PIPERACILLIN [Suspect]
     Active Substance: PIPERACILLIN SODIUM\TAZOBACTAM SODIUM
     Indication: ANTIBIOTIC PROPHYLAXIS
     Route: 065

REACTIONS (8)
  - Graft versus host disease [Fatal]
  - Abscess [None]
  - Escherichia test positive [None]
  - Graft versus host disease in gastrointestinal tract [None]
  - C-reactive protein increased [Fatal]
  - Graft versus host disease in skin [None]
  - Systemic inflammatory response syndrome [Fatal]
  - Bacterial sepsis [None]
